FAERS Safety Report 7052220-8 (Version None)
Quarter: 2010Q4

REPORT INFORMATION
  Report Type: 
  Country: None (occurrence: None)
  Receive Date: 20101018
  Receipt Date: 20101018
  Transmission Date: 20110411
  Serious: No
  Sender: FDA-Public Use
  Company Number: None

PATIENT
  Sex: Female
  Weight: 50.8029 kg

DRUGS (3)
  1. FOSAMAX [Suspect]
     Indication: OSTEOPOROSIS
     Dosage: 1 WEEKLY PO
     Route: 048
     Dates: start: 20030101, end: 20100101
  2. LOVASTATIN [Suspect]
     Indication: BLOOD CHOLESTEROL
     Dosage: 1 A DAY PO
     Route: 048
     Dates: start: 20060101, end: 20080101
  3. LOVASTATIN [Suspect]
     Indication: CEREBROVASCULAR ACCIDENT PROPHYLAXIS
     Dosage: 1 A DAY PO
     Route: 048
     Dates: start: 20060101, end: 20080101

REACTIONS (1)
  - MYALGIA [None]
